FAERS Safety Report 9081077 (Version 1)
Quarter: 2013Q1

REPORT INFORMATION
  Report Type: Spontaneous
  Country: US (occurrence: US)
  Receive Date: 20130218
  Receipt Date: 20130218
  Transmission Date: 20140127
  Serious: No
  Sender: FDA-Public Use
  Company Number: US-PFIZER INC-2013057990

PATIENT
  Sex: Female

DRUGS (1)
  1. XALKORI [Suspect]
     Dosage: UNK
     Dates: start: 201302

REACTIONS (1)
  - Vitreous floaters [Unknown]
